FAERS Safety Report 19807683 (Version 1)
Quarter: 2021Q3

REPORT INFORMATION
  Report Type: Spontaneous
  Country: US (occurrence: US)
  Receive Date: 20210908
  Receipt Date: 20210908
  Transmission Date: 20211014
  Serious: Yes (Other)
  Sender: FDA-Public Use
  Company Number: None

PATIENT
  Age: 34 Year
  Sex: Female
  Weight: 82.1 kg

DRUGS (3)
  1. UBRELVY [Concomitant]
     Active Substance: UBROGEPANT
  2. ALEVE [Concomitant]
     Active Substance: NAPROXEN SODIUM
  3. MIRENA [Suspect]
     Active Substance: LEVONORGESTREL
     Dates: start: 20190601

REACTIONS (4)
  - Device dislocation [None]
  - Pain [None]
  - Embedded device [None]
  - Screaming [None]

NARRATIVE: CASE EVENT DATE: 20210907
